FAERS Safety Report 25191557 (Version 1)
Quarter: 2025Q2

REPORT INFORMATION
  Report Type: Report from Study
  Country: FI (occurrence: FI)
  Receive Date: 20250414
  Receipt Date: 20250414
  Transmission Date: 20250716
  Serious: Yes (Other)
  Sender: MYLAN
  Company Number: FI-MYLANLABS-2025M1028081

PATIENT
  Age: 62 Year
  Sex: Female

DRUGS (7)
  1. CLOZAPINE [Suspect]
     Active Substance: CLOZAPINE
     Indication: Bipolar disorder
     Dosage: 300 MILLIGRAM, QD
     Dates: start: 2019, end: 2021
  2. CLOZAPINE [Suspect]
     Active Substance: CLOZAPINE
     Indication: Psychotic disorder
  3. Etoricoxib ratiopharm [Concomitant]
     Dosage: 30 MILLIGRAM, QD
  4. METOPROLOL [Concomitant]
     Active Substance: METOPROLOL
     Dosage: 47.5 MILLIGRAM, QD
     Dates: start: 202409
  5. ABILIFY MAINTENA [Concomitant]
     Active Substance: ARIPIPRAZOLE
  6. BUPROPION [Concomitant]
     Active Substance: BUPROPION
     Dosage: 300 MILLIGRAM, QD
  7. DULOXETINE [Concomitant]
     Active Substance: DULOXETINE
     Dosage: 90 MILLIGRAM, QD

REACTIONS (7)
  - Deep vein thrombosis [Unknown]
  - Embolism [Unknown]
  - Oedema [Unknown]
  - Fibrin D dimer increased [Unknown]
  - Blood pressure increased [Unknown]
  - Heart rate increased [Unknown]
  - Off label use [Unknown]

NARRATIVE: CASE EVENT DATE: 20190101
